FAERS Safety Report 8812283 (Version 1)
Quarter: 2012Q4

REPORT INFORMATION
  Report Type: Spontaneous
  Country: SE (occurrence: None)
  Receive Date: 20120925
  Receipt Date: 20120925
  Transmission Date: 20130627
  Serious: Yes (Death, Other)
  Sender: FDA-Public Use
  Company Number: FK201202743

PATIENT

DRUGS (4)
  1. FLUDARABINE [Suspect]
     Indication: CHRONIC LYMPHOCYTIC LEUKEMIA
  2. CYCLOPHOSPHAMIDE [Suspect]
     Indication: CHRONIC LYMPHOCYTIC LEUKEMIA
  3. BENDAMUSTINE [Concomitant]
  4. RITUXIMAB [Suspect]

REACTIONS (5)
  - Paraneoplastic pemphigus [None]
  - Infection [None]
  - Neutropenia [None]
  - Stomatitis [None]
  - Oesophagitis [None]
